FAERS Safety Report 10083924 (Version 1)
Quarter: 2014Q2

REPORT INFORMATION
  Report Type: Spontaneous
  Country: CA (occurrence: None)
  Receive Date: 20140416
  Receipt Date: 20140416
  Transmission Date: 20141212
  Serious: Yes (Hospitalization)
  Sender: FDA-Public Use
  Company Number: ABR_01582_2014

PATIENT
  Age: 12 Year
  Sex: Male

DRUGS (4)
  1. ERYTHROMYCIN ETHYLSUCCINATE [Suspect]
     Indication: PHARYNGITIS BACTERIAL
  2. ERYTHROMYCIN ETHYLSUCCINATE [Suspect]
     Indication: PROPHYLAXIS
  3. ACETAMINOPHEN W/CODEINE [Suspect]
     Indication: PHARYNGITIS BACTERIAL
  4. ACETAMINOPHEN WITH CODEINE PHOSPHATE AND CAFFEINE [Suspect]
     Indication: PRODUCT USED FOR UNKNOWN INDICATION
     Dosage: 1 WEEK  (ACETAMINOPEN 300 MG, CODEINE PHOSPHATE 30 MG, AND CAFFEINE 15 MG, 1 OR 2 TABLETS EVERY 4 TO 6 HOUS)

REACTIONS (11)
  - Hallucination [None]
  - Euphoric mood [None]
  - Inappropriate affect [None]
  - Speech disorder [None]
  - Flight of ideas [None]
  - Energy increased [None]
  - Psychomotor hyperactivity [None]
  - Delusion of grandeur [None]
  - Mania [None]
  - Psychotic disorder [None]
  - Drug interaction [None]
